FAERS Safety Report 6042615-3 (Version None)
Quarter: 2009Q1

REPORT INFORMATION
  Report Type: 
  Country: None (occurrence: None)
  Receive Date: 20090119
  Receipt Date: 20090109
  Transmission Date: 20090719
  Serious: Yes (Life-Threatening)
  Sender: FDA-Public Use
  Company Number: NL-BAYER-200910081GPV

PATIENT
  Age: 69 Year
  Sex: Male

DRUGS (2)
  1. NEXAVAR [Suspect]
     Indication: DRUG USE FOR UNKNOWN INDICATION
     Route: 048
     Dates: start: 20081201, end: 20081201
  2. NEXAVAR [Suspect]
     Route: 048
     Dates: start: 20081201

REACTIONS (4)
  - BLISTER [None]
  - DYSPNOEA [None]
  - SWOLLEN TONGUE [None]
  - TRACHEAL OEDEMA [None]
